FAERS Safety Report 8834586 (Version 1)
Quarter: 2012Q4

REPORT INFORMATION
  Report Type: 
  Country: CO (occurrence: CO)
  Receive Date: 20121010
  Receipt Date: 20121010
  Transmission Date: 20130627
  Serious: Yes (Other)
  Sender: FDA-Public Use
  Company Number: CO-PFIZER INC-2012166637

PATIENT
  Age: 50 Year
  Sex: Female

DRUGS (6)
  1. ENBREL [Suspect]
     Indication: SPONDYLOARTHROPATHY
     Dosage: 50 mg, weekly
     Route: 058
     Dates: start: 201204, end: 20120625
  2. LYRICA [Suspect]
     Indication: FIBROMYALGIA
     Dosage: 150 mg, 1x/day
     Route: 048
     Dates: start: 201204, end: 20120630
  3. LYRICA [Suspect]
     Indication: PAIN
  4. ESCITALOPRAM [Concomitant]
     Indication: DEPRESSION
     Dosage: UNK
  5. BETALOC ZOK [Concomitant]
     Indication: HYPERTENSION
     Dosage: 100 mg, 1x/day
     Route: 048
  6. ZOLPIDEM [Concomitant]
     Indication: SLEEP DISORDER
     Dosage: UNK

REACTIONS (5)
  - Mental retardation [Recovered/Resolved]
  - Disturbance in attention [Recovered/Resolved]
  - Oedema [Not Recovered/Not Resolved]
  - Injection site swelling [Not Recovered/Not Resolved]
  - Injection site induration [Recovering/Resolving]
